FAERS Safety Report 8101110-8 (Version None)
Quarter: 2012Q1

REPORT INFORMATION
  Report Type: 
  Country: None (occurrence: None)
  Receive Date: 20120129
  Receipt Date: 20110907
  Transmission Date: 20120608
  Serious: No
  Sender: FDA-Public Use
  Company Number: US-ABBOTT-11P-163-0852845-00

PATIENT
  Sex: Female
  Weight: 59.928 kg

DRUGS (3)
  1. HUMIRA [Suspect]
     Indication: PSORIASIS
     Route: 058
     Dates: start: 20110216
  2. HUMIRA [Suspect]
     Indication: PSORIATIC ARTHROPATHY
  3. MULTIPLE UNKNOWN MEDICATION(S) [Concomitant]
     Indication: PRODUCT USED FOR UNKNOWN INDICATION

REACTIONS (4)
  - INCORRECT STORAGE OF DRUG [None]
  - ECZEMA [None]
  - POOR QUALITY DRUG ADMINISTERED [None]
  - PSORIASIS [None]
